FAERS Safety Report 6723655-5 (Version None)
Quarter: 2010Q2

REPORT INFORMATION
  Report Type: 
  Country: None (occurrence: None)
  Receive Date: 20100513
  Receipt Date: 20100305
  Transmission Date: 20101027
  Serious: Yes (Hospitalization)
  Sender: FDA-Public Use
  Company Number: JP-ROCHE-629481

PATIENT
  Sex: Female
  Weight: 63 kg

DRUGS (23)
  1. TOCILIZUMAB [Suspect]
     Indication: RHEUMATOID ARTHRITIS
     Route: 041
     Dates: start: 20081225, end: 20081225
  2. TOCILIZUMAB [Suspect]
     Route: 041
     Dates: start: 20090122, end: 20090122
  3. TOCILIZUMAB [Suspect]
     Route: 041
     Dates: start: 20090219, end: 20090219
  4. TOCILIZUMAB [Suspect]
     Route: 041
     Dates: start: 20090319, end: 20090319
  5. TOCILIZUMAB [Suspect]
     Route: 041
     Dates: start: 20090416, end: 20090416
  6. TOCILIZUMAB [Suspect]
     Route: 041
     Dates: start: 20090514, end: 20090514
  7. TOCILIZUMAB [Suspect]
     Route: 041
     Dates: start: 20090611, end: 20090611
  8. TOCILIZUMAB [Suspect]
     Route: 041
     Dates: start: 20090609
  9. RHEUMATREX [Concomitant]
     Route: 048
  10. AZULFIDINE [Concomitant]
     Dosage: FORM: ENTERIC
     Route: 048
  11. ISCOTIN [Concomitant]
     Route: 048
  12. PREDNISOLONE [Concomitant]
     Dosage: FORM: ORAL FORMULATION (NOT OTHERWISE SPECIFIED)
     Route: 048
     Dates: end: 20090218
  13. PREDNISOLONE [Concomitant]
     Route: 048
     Dates: start: 20090219, end: 20090318
  14. PREDNISOLONE [Concomitant]
     Route: 048
     Dates: start: 20090319
  15. THYRADIN S [Concomitant]
     Route: 048
  16. VOLTAREN [Concomitant]
     Dosage: FORM: SUSTAINED RELEASE CAPSULE
     Route: 048
  17. MEVALOTIN [Concomitant]
     Dosage: FORM: ORAL FORMULATION (NOT OTHERWISE SPECIFIED)
     Route: 048
  18. BENET [Concomitant]
     Route: 048
  19. BASEN [Concomitant]
     Route: 048
  20. FOLIC ACID [Concomitant]
     Dosage: FORM: ORAL FORMULATION (NOT OTHERWISE SPECIFIED)
     Route: 048
  21. ALFAROL [Concomitant]
     Route: 048
  22. PARIET [Concomitant]
     Route: 048
  23. ALLEGRA [Concomitant]
     Route: 048
     Dates: start: 20090113, end: 20090514

REACTIONS (2)
  - APPENDICITIS [None]
  - SUBCUTANEOUS ABSCESS [None]
